FAERS Safety Report 7542748-6 (Version None)
Quarter: 2011Q2

REPORT INFORMATION
  Report Type: 
  Country: None (occurrence: None)
  Receive Date: 20110613
  Receipt Date: 20110606
  Transmission Date: 20111010
  Serious: Yes (Hospitalization)
  Sender: FDA-Public Use
  Company Number: A0930392A

PATIENT
  Age: 62 Year
  Sex: Female

DRUGS (9)
  1. LEVOXYL [Concomitant]
  2. NORVASC [Concomitant]
  3. XANAX [Concomitant]
  4. ADVAIR DISKUS 100/50 [Suspect]
     Indication: CHRONIC OBSTRUCTIVE PULMONARY DISEASE
     Dosage: 1PUFF TWICE PER DAY
     Route: 055
     Dates: start: 20080301, end: 20110530
  5. TRAMADOL HCL [Concomitant]
  6. COUMADIN [Concomitant]
  7. UNSPECIFIED MEDICATION [Concomitant]
  8. PRISTIQ [Concomitant]
  9. TRAZODONE HCL [Concomitant]

REACTIONS (1)
  - PULMONARY EMBOLISM [None]
